FAERS Safety Report 7321461-4 (Version None)
Quarter: 2011Q1

REPORT INFORMATION
  Report Type: 
  Country: None (occurrence: None)
  Receive Date: 20110228
  Receipt Date: 20100521
  Transmission Date: 20110831
  Serious: No
  Sender: FDA-Public Use
  Company Number: US-PFIZER INC-2010067405

PATIENT
  Age: 12 Year
  Sex: Female

DRUGS (9)
  1. WELLBUTRIN XL [Concomitant]
     Indication: AFFECTIVE DISORDER
     Dosage: 450 MG, UNK
     Route: 048
     Dates: start: 20080416, end: 20090801
  2. AMOXICILLIN [Suspect]
     Dosage: UNK
  3. GEODON [Suspect]
     Indication: HALLUCINATION
     Dosage: 20 MG, UNK
     Route: 048
     Dates: start: 20080903, end: 20081001
  4. GEODON [Suspect]
     Indication: DELUSION
     Dosage: 40 MG, UNK
     Route: 048
     Dates: start: 20081001
  5. GEODON [Suspect]
     Dosage: 60 MG, UNK
     Route: 048
     Dates: end: 20090222
  6. SYNTHROID [Concomitant]
     Indication: HYPOTHYROIDISM
     Dosage: 37.5 MG, UNK
     Route: 048
  7. MULTIPLE VITAMINS [Concomitant]
     Indication: VITAMIN SUPPLEMENTATION
     Dosage: UNK
  8. CONCERTA [Concomitant]
     Indication: DISTURBANCE IN ATTENTION
     Dosage: 18 MG, UNK
     Route: 048
     Dates: start: 20080514, end: 20081001
  9. WELLBUTRIN XL [Concomitant]
     Indication: DISTURBANCE IN ATTENTION

REACTIONS (3)
  - RASH [None]
  - PRURITUS [None]
  - ERYTHEMA [None]
